FAERS Safety Report 5763341-1 (Version None)
Quarter: 2008Q2

REPORT INFORMATION
  Report Type: 
  Country: None (occurrence: None)
  Receive Date: 20080602
  Receipt Date: 20080228
  Transmission Date: 20081010
  Serious: No
  Sender: FDA-Public Use
  Company Number: PHEH2008US02413

PATIENT
  Age: 51 Year
  Sex: Female

DRUGS (2)
  1. TEKTURNA [Suspect]
     Dosage: 150, QD
     Dates: start: 20080218, end: 20080227
  2. HYDROCHLOROTHIAZIDE [Concomitant]

REACTIONS (2)
  - DIARRHOEA [None]
  - NAUSEA [None]
